FAERS Safety Report 4658061-0 (Version None)
Quarter: 2005Q2

REPORT INFORMATION
  Report Type: 
  Country: None (occurrence: None)
  Receive Date: 20050510
  Receipt Date: 20050503
  Transmission Date: 20051028
  Serious: Yes (Death, Hospitalization)
  Sender: FDA-Public Use
  Company Number: CLOF-10006

PATIENT
  Age: 68 Year
  Sex: Male

DRUGS (8)
  1. CLOFARABINE [Suspect]
     Indication: ACUTE MYELOID LEUKAEMIA
     Dosage: 54.9 MG QD X 5 IV
     Route: 042
     Dates: start: 20050426, end: 20050430
  2. ALLOPURINOL [Concomitant]
  3. TAZOCIN [Concomitant]
  4. GENTAMICIN [Concomitant]
  5. TEICOPLANIN [Concomitant]
  6. ALBECET [Concomitant]
  7. MEROPENEM [Concomitant]
  8. FILGRASTIM [Concomitant]

REACTIONS (3)
  - NEUTROPENIA [None]
  - RENAL FAILURE ACUTE [None]
  - SEPSIS [None]
